FAERS Safety Report 5827294-X (Version None)
Quarter: 2008Q3

REPORT INFORMATION
  Report Type: 
  Country: None (occurrence: None)
  Receive Date: 20080730
  Receipt Date: 20080715
  Transmission Date: 20090109
  Serious: Yes (Hospitalization)
  Sender: FDA-Public Use
  Company Number: AT-GENENTECH-263369

PATIENT
  Sex: Male

DRUGS (12)
  1. BLINDED BEVACIZUMAB [Suspect]
     Indication: LYMPHOMA
     Dosage: 16 MG/KG, Q3W
     Route: 042
     Dates: start: 20080605
  2. CYCLOPHOSPHAMIDE [Suspect]
     Indication: LYMPHOMA
     Dosage: 16 MG/KG, Q3W
     Route: 042
     Dates: start: 20080605
  3. DOXORUBICIN HCL [Suspect]
     Indication: LYMPHOMA
     Dosage: 16 MG/KG, Q3W
     Route: 042
     Dates: start: 20080605
  4. BLINDED PLACEBO [Suspect]
     Indication: LYMPHOMA
     Dosage: 16 MG/KG, Q3W
     Route: 042
     Dates: start: 20080605
  5. BLINDED PREDNISONE [Suspect]
     Indication: LYMPHOMA
     Dosage: 16 MG/KG, Q3W
     Route: 042
     Dates: start: 20080605
  6. BLINDED RITUXIMAB [Suspect]
     Indication: LYMPHOMA
     Dosage: 16 MG/KG, Q3W
     Route: 042
     Dates: start: 20080605
  7. VINCRISTINE [Suspect]
     Indication: LYMPHOMA
     Dosage: 16 MG/KG, Q3W
     Route: 042
     Dates: start: 20080605
  8. RITUXAN [Suspect]
     Indication: DIFFUSE LARGE B-CELL LYMPHOMA
     Dosage: 77953 MG, Q3W
     Route: 042
     Dates: start: 20080610
  9. CYCLOPHOSPHAMIDE [Suspect]
     Indication: DIFFUSE LARGE B-CELL LYMPHOMA
     Dosage: 100 %, Q3W
     Dates: start: 20080610
  10. DOXORUBICIN HCL [Suspect]
     Indication: DIFFUSE LARGE B-CELL LYMPHOMA
     Dosage: 100 %, Q3W
     Dates: start: 20080610
  11. PREDNISONE [Suspect]
     Indication: DIFFUSE LARGE B-CELL LYMPHOMA
     Dosage: 100 %, Q3W
     Dates: start: 20080610
  12. VINCRISTINE [Suspect]
     Indication: DIFFUSE LARGE B-CELL LYMPHOMA
     Dosage: 100 %, Q3W
     Dates: start: 20080610

REACTIONS (1)
  - FEBRILE NEUTROPENIA [None]
